FAERS Safety Report 13182584 (Version 9)
Quarter: 2017Q3

REPORT INFORMATION
  Report Type: Spontaneous
  Country: US (occurrence: US)
  Receive Date: 20170203
  Receipt Date: 20170804
  Transmission Date: 20171127
  Serious: No
  Sender: FDA-Public Use
  Company Number: US-PFIZER INC-2017043616

PATIENT
  Age: 63 Year
  Sex: Female

DRUGS (12)
  1. AMBIEN [Concomitant]
     Active Substance: ZOLPIDEM TARTRATE
     Dosage: UNK
  2. SUTENT [Suspect]
     Active Substance: SUNITINIB MALATE
     Dosage: 50 MG, CYCLIC(14 DAYS ON AND 7 DAYS OFF)
  3. SUTENT [Suspect]
     Active Substance: SUNITINIB MALATE
     Indication: GASTRIC CANCER
     Dosage: 37.5 MG, CYCLIC (12.5 MG/TAKE 3 CAP./EVERY DAY FOR 2 WEEKS ON THEN 1 WEEK OFF TO RECOVER AND REPEAT)
     Route: 048
  4. SUTENT [Suspect]
     Active Substance: SUNITINIB MALATE
     Dosage: 50 MG, CYCLIC (TAKE 1 CAPSULE OF 50MG BY MOUTH EVERY DAY FOR 14 DAYS ON AND 7 DAYS OFF, THEN REPEAT)
     Route: 048
  5. SUTENT [Suspect]
     Active Substance: SUNITINIB MALATE
     Dosage: 25 MG, CYCLIC (2 DOSES OF MEDICATION INSTEAD OF THE 3)
  6. SUTENT [Suspect]
     Active Substance: SUNITINIB MALATE
     Dosage: 50 MG, ALTERNATE DAY (BY MOUTH EVERY OTHER DAY ALTERNATING )
     Route: 048
  7. SUTENT [Suspect]
     Active Substance: SUNITINIB MALATE
     Dosage: 37.5 MG, CYCLIC (14 DAYS ON AND 7 DAYS OFF)
     Route: 048
  8. CREON [Concomitant]
     Active Substance: PANCRELIPASE AMYLASE\PANCRELIPASE LIPASE\PANCRELIPASE PROTEASE
     Dosage: UNK
  9. CELEBREX [Concomitant]
     Active Substance: CELECOXIB
     Dosage: UNK
  10. CELEXA [Concomitant]
     Active Substance: CITALOPRAM HYDROBROMIDE
     Dosage: UNK
  11. CYCLOBENZAPRINE HCL [Concomitant]
     Active Substance: CYCLOBENZAPRINE HYDROCHLORIDE
     Dosage: UNK
  12. GABAPENTIN. [Concomitant]
     Active Substance: GABAPENTIN
     Dosage: UNK

REACTIONS (10)
  - Restlessness [Unknown]
  - Nervousness [Unknown]
  - Oral pain [Unknown]
  - Restless legs syndrome [Unknown]
  - Fatigue [Unknown]
  - Intentional product misuse [Unknown]
  - Nausea [Recovered/Resolved]
  - Hepatic pain [Unknown]
  - Neoplasm progression [Unknown]
  - Back pain [Unknown]
